FAERS Safety Report 6867042-8 (Version None)
Quarter: 2010Q2

REPORT INFORMATION
  Report Type: 
  Country: None (occurrence: None)
  Receive Date: 20100528
  Receipt Date: 20100419
  Transmission Date: 20101027
  Serious: No
  Sender: FDA-Public Use
  Company Number: 2010049967

PATIENT
  Age: 74 Year
  Sex: Female
  Weight: 52.2 kg

DRUGS (5)
  1. TOVIAZ [Suspect]
     Indication: HYPERTONIC BLADDER
     Dosage: 8 MG, 1X/DAY, ORAL
     Route: 048
     Dates: start: 20100401
  2. ZOCOR [Concomitant]
  3. EXELON [Concomitant]
  4. KLONOPIN [Concomitant]
  5. OMEPRAZOLE [Concomitant]

REACTIONS (2)
  - CONSTIPATION [None]
  - DRY MOUTH [None]
